FAERS Safety Report 6578442-8 (Version None)
Quarter: 2010Q1

REPORT INFORMATION
  Report Type: 
  Country: None (occurrence: None)
  Receive Date: 20100211
  Receipt Date: 20100205
  Transmission Date: 20100710
  Serious: Yes (Hospitalization)
  Sender: FDA-Public Use
  Company Number: Z0002985A

PATIENT
  Sex: Male
  Weight: 81.1 kg

DRUGS (5)
  1. OFATUMUMAB [Suspect]
     Route: 042
     Dates: start: 20091123
  2. FLUDARABINE [Suspect]
     Route: 042
     Dates: start: 20091125
  3. CYCLOPHOSPHAMIDE [Suspect]
     Route: 042
     Dates: start: 20091125
  4. TRANDOLAPRIL [Concomitant]
     Dosage: 1MG PER DAY
     Route: 048
     Dates: start: 20100120
  5. PANTOPRAZOLE [Concomitant]
     Dosage: 40MG PER DAY
     Route: 048

REACTIONS (1)
  - FEBRILE NEUTROPENIA [None]
